FAERS Safety Report 9642725 (Version 2)
Quarter: 2013Q4

REPORT INFORMATION
  Report Type: Report from Study
  Country: JP (occurrence: JP)
  Receive Date: 20131024
  Receipt Date: 20131118
  Transmission Date: 20140711
  Serious: Yes (Death, Other)
  Sender: FDA-Public Use
  Company Number: JP-MPIJNJ-2013JNJ000712

PATIENT
  Sex: 0

DRUGS (3)
  1. VELCADE [Suspect]
     Indication: PLASMA CELL MYELOMA
     Dosage: 0.7 MG/M2, UNK
     Route: 058
     Dates: start: 20130918, end: 20130925
  2. VELCADE [Suspect]
     Dosage: 1.0 MG/M2, UNK
     Route: 058
     Dates: start: 20131002, end: 20131009
  3. DEXAMETHASONE [Concomitant]
     Indication: PLASMA CELL MYELOMA
     Dosage: UNK
     Dates: start: 20130918

REACTIONS (1)
  - Ventricular arrhythmia [Fatal]
